FAERS Safety Report 10185413 (Version 1)
Quarter: 2014Q2

REPORT INFORMATION
  Report Type: Report from Study
  Country: MX (occurrence: MX)
  Receive Date: 20140521
  Receipt Date: 20140521
  Transmission Date: 20141212
  Serious: Yes (Other)
  Sender: FDA-Public Use
  Company Number: PHHY2014MX061123

PATIENT
  Sex: Female

DRUGS (7)
  1. ACLASTA [Suspect]
     Indication: OSTEOPOROSIS
     Dosage: UNK UKN, ANUALLY
     Route: 042
     Dates: start: 200709
  2. CO-DIOVAN [Suspect]
     Indication: ARRHYTHMIA
     Dosage: UNK UKN, UNK
     Dates: start: 200709
  3. CO-DIOVAN [Suspect]
     Indication: OFF LABEL USE
  4. DIOVAN [Suspect]
     Indication: ARRHYTHMIA
     Dosage: 160 MG, DAILY
     Route: 048
     Dates: start: 200708, end: 200709
  5. DIOVAN [Suspect]
     Indication: OFF LABEL USE
  6. TENORMIN [Concomitant]
     Dosage: UNK UKN, UNK
  7. SYNVISC [Concomitant]
     Dosage: UNK UKN, UNK

REACTIONS (10)
  - Joint dislocation [Not Recovered/Not Resolved]
  - Nervous system disorder [Not Recovered/Not Resolved]
  - Feeling abnormal [Not Recovered/Not Resolved]
  - Hearing impaired [Not Recovered/Not Resolved]
  - Restlessness [Not Recovered/Not Resolved]
  - Osteopenia [Not Recovered/Not Resolved]
  - Joint swelling [Not Recovered/Not Resolved]
  - Arthritis [Not Recovered/Not Resolved]
  - Fatigue [Not Recovered/Not Resolved]
  - Insomnia [Not Recovered/Not Resolved]
